FAERS Safety Report 21365330 (Version 1)
Quarter: 2022Q3

REPORT INFORMATION
  Report Type: Spontaneous
  Country: US (occurrence: US)
  Receive Date: 20220922
  Receipt Date: 20220922
  Transmission Date: 20221026
  Serious: No
  Sender: FDA-Public Use
  Company Number: US-PFIZER INC-202201178626

PATIENT

DRUGS (2)
  1. NARDIL [Suspect]
     Active Substance: PHENELZINE SULFATE
     Dosage: 22.5 MG, 2X/DAY, (15 MILLIGRAM, ONE AND A HALF TWICE A DAY WHICH WAS THE DOSE I WAS ORIGINALLY ON)
  2. NARDIL [Suspect]
     Active Substance: PHENELZINE SULFATE
     Dosage: 15 MG, 2X/DAY

REACTIONS (4)
  - Peripheral swelling [Unknown]
  - Depression [Unknown]
  - Paraesthesia [Unknown]
  - Hypertension [Unknown]
